FAERS Safety Report 15113036 (Version 1)
Quarter: 2018Q3

REPORT INFORMATION
  Report Type: Report from Study
  Country: US (occurrence: US)
  Receive Date: 20180706
  Receipt Date: 20180706
  Transmission Date: 20181010
  Serious: Yes (Death, Other)
  Sender: FDA-Public Use
  Company Number: US-ROCHE-2143025

PATIENT
  Sex: Male

DRUGS (1)
  1. OCREVUS [Suspect]
     Active Substance: OCRELIZUMAB
     Indication: PRIMARY PROGRESSIVE MULTIPLE SCLEROSIS
     Dosage: ON 16/OCT/2017, HE RECEIVED SECOND HALF DOSE OF OCRELIZUMAB INFUSION.
     Route: 065
     Dates: start: 20171002

REACTIONS (2)
  - Cardiac failure congestive [Fatal]
  - Sepsis [Unknown]
